FAERS Safety Report 5831045-2 (Version None)
Quarter: 2008Q3

REPORT INFORMATION
  Report Type: 
  Country: None (occurrence: None)
  Receive Date: 20080801
  Receipt Date: 20080318
  Transmission Date: 20090109
  Serious: No
  Sender: FDA-Public Use
  Company Number: US-BRISTOL-MYERS SQUIBB COMPANY-14119739

PATIENT
  Age: 71 Year
  Sex: Male

DRUGS (10)
  1. COUMADIN [Suspect]
     Indication: ATRIAL FIBRILLATION
     Dosage: 1 DOSAGE FORM = 65-75MG.
     Dates: start: 20060101
  2. WARFARIN SODIUM [Suspect]
     Indication: ATRIAL FIBRILLATION
     Dates: start: 20060101
  3. ZOCOR [Concomitant]
  4. SOTALOL HCL [Concomitant]
  5. PROTONIX [Concomitant]
  6. LANOXIN [Concomitant]
  7. LISINOPRIL [Concomitant]
  8. DIGITEK [Concomitant]
  9. AVAPRO [Concomitant]
  10. CASODEX [Concomitant]

REACTIONS (1)
  - INTERNATIONAL NORMALISED RATIO ABNORMAL [None]
